FAERS Safety Report 8881389 (Version 2)
Quarter: 2013Q3

REPORT INFORMATION
  Report Type: Spontaneous
  Country: US (occurrence: None)
  Receive Date: 20120502
  Receipt Date: 20130711
  Transmission Date: 20140515
  Serious: Yes (Other)
  Sender: FDA-Public Use
  Company Number: PHEH2008US05728

PATIENT
  Sex: 0

DRUGS (1)
  1. SIMULECT [Suspect]
     Indication: TRANSPLANT
     Dosage: 20 MG VIAL, INFUSION

REACTIONS (1)
  - Pyrexia [None]
